FAERS Safety Report 6709790-6 (Version None)
Quarter: 2010Q2

REPORT INFORMATION
  Report Type: 
  Country: None (occurrence: None)
  Receive Date: 20100429
  Receipt Date: 20100414
  Transmission Date: 20101027
  Serious: Yes (Hospitalization, Other)
  Sender: FDA-Public Use
  Company Number: 2010001494

PATIENT
  Age: 73 Year
  Sex: Male

DRUGS (13)
  1. TARCEVA [Suspect]
     Indication: LARGE CELL CARCINOMA OF THE RESPIRATORY TRACT STAGE UNSPECIFIED
     Dosage: (150 MG, QD), ORAL
     Route: 048
     Dates: start: 20100403, end: 20100407
  2. MOBIC [Concomitant]
  3. CLONAZEPAM [Concomitant]
  4. SHAKUYAKU-KANZO-TO [Concomitant]
  5. MUCOSOLVAN (AMBROXOL HYDROCHLORIDE) [Concomitant]
  6. MUCODYNE (CARBOCISTEINE) [Concomitant]
  7. CLARITHROMYCIN [Concomitant]
  8. EXCELASE (EXCELASE) [Concomitant]
  9. SELBEX (TEPRENONE) [Concomitant]
  10. NITRAZEPAM [Concomitant]
  11. NEUROVITAN (NEUROVITAN) [Concomitant]
  12. PRIMPERAN TAB [Concomitant]
  13. LANSOPRAZOLE [Concomitant]

REACTIONS (14)
  - CEREBRAL HAEMORRHAGE [None]
  - CONSTIPATION [None]
  - COUGH [None]
  - DEPRESSED LEVEL OF CONSCIOUSNESS [None]
  - DERMATITIS ACNEIFORM [None]
  - EPISTAXIS [None]
  - GAIT DISTURBANCE [None]
  - INJURY ASSOCIATED WITH DEVICE [None]
  - INTERSTITIAL LUNG DISEASE [None]
  - MALIGNANT NEOPLASM PROGRESSION [None]
  - METASTASES TO CENTRAL NERVOUS SYSTEM [None]
  - PNEUMONIA ASPIRATION [None]
  - PO2 DECREASED [None]
  - PYREXIA [None]
